FAERS Safety Report 13323343 (Version 1)
Quarter: 2017Q1

REPORT INFORMATION
  Report Type: Spontaneous
  Country: JP (occurrence: JP)
  Receive Date: 20170310
  Receipt Date: 20170310
  Transmission Date: 20170428
  Serious: Yes (Other)
  Sender: FDA-Public Use
  Company Number: JP-PFIZER INC-2017102373

PATIENT

DRUGS (3)
  1. METHOTREXATE SODIUM. [Suspect]
     Active Substance: METHOTREXATE SODIUM
     Dosage: 14 MG, WEEKLY
  2. INTERFERON [Suspect]
     Active Substance: INTERFERON
     Dosage: 10 MG/KG/8 WEEKS
  3. ISONIAZID. [Suspect]
     Active Substance: ISONIAZID

REACTIONS (1)
  - Pulmonary tuberculosis [Unknown]
